FAERS Safety Report 6906682-4 (Version None)
Quarter: 2010Q3

REPORT INFORMATION
  Report Type: 
  Country: None (occurrence: None)
  Receive Date: 20100708
  Receipt Date: 20090501
  Transmission Date: 20110219
  Serious: Yes (Other)
  Sender: FDA-Public Use
  Company Number: 2008092112

PATIENT
  Age: 66 Year
  Sex: Female
  Weight: 71.4 kg

DRUGS (3)
  1. CHANTIX [Suspect]
     Indication: SMOKING CESSATION THERAPY
     Dosage: 1 MG, 2X/DAY
     Dates: start: 20080401, end: 20080401
  2. ATENOLOL [Concomitant]
  3. SIMVASTATIN [Concomitant]

REACTIONS (9)
  - COORDINATION ABNORMAL [None]
  - DEPRESSION [None]
  - DISTURBANCE IN ATTENTION [None]
  - FEELING ABNORMAL [None]
  - IMPAIRED DRIVING ABILITY [None]
  - INTENTIONAL DRUG MISUSE [None]
  - MENTAL DISORDER [None]
  - SUICIDAL IDEATION [None]
  - THINKING ABNORMAL [None]
